FAERS Safety Report 24256831 (Version 1)
Quarter: 2024Q3

REPORT INFORMATION
  Report Type: Spontaneous
  Country: US (occurrence: US)
  Receive Date: 20240828
  Receipt Date: 20240828
  Transmission Date: 20241016
  Serious: Yes (Other)
  Sender: CSL BEHRING
  Company Number: US-BEH-2024177540

PATIENT
  Age: 44 Year
  Sex: Male

DRUGS (8)
  1. IDELVION [Suspect]
     Active Substance: COAGULATION FACTOR IX RECOMBINANT HUMAN
     Indication: Factor IX deficiency
     Dosage: 2500 IU, QW
     Route: 042
     Dates: start: 202405
  2. IDELVION [Suspect]
     Active Substance: COAGULATION FACTOR IX RECOMBINANT HUMAN
     Indication: Factor IX deficiency
     Dosage: 2500 IU, QW
     Route: 042
     Dates: start: 202405
  3. IDELVION [Suspect]
     Active Substance: COAGULATION FACTOR IX RECOMBINANT HUMAN
     Indication: Haemorrhage
     Dosage: 2500 IU, QOD PRN
     Route: 042
     Dates: start: 202405
  4. IDELVION [Suspect]
     Active Substance: COAGULATION FACTOR IX RECOMBINANT HUMAN
     Indication: Haemorrhage
     Dosage: 2500 IU, QOD PRN
     Route: 042
     Dates: start: 202405
  5. IDELVION [Suspect]
     Active Substance: COAGULATION FACTOR IX RECOMBINANT HUMAN
     Indication: Factor IX deficiency
     Dosage: 3500 IU, QD
     Route: 042
     Dates: start: 202405
  6. IDELVION [Suspect]
     Active Substance: COAGULATION FACTOR IX RECOMBINANT HUMAN
     Indication: Factor IX deficiency
     Dosage: 3500 IU, QD
     Route: 042
     Dates: start: 202405
  7. IDELVION [Suspect]
     Active Substance: COAGULATION FACTOR IX RECOMBINANT HUMAN
     Indication: Haemorrhage
     Dosage: 3500 IU, QOD PRN
     Route: 042
     Dates: start: 202405
  8. IDELVION [Suspect]
     Active Substance: COAGULATION FACTOR IX RECOMBINANT HUMAN
     Indication: Haemorrhage
     Dosage: 3500 IU, QOD PRN
     Route: 042
     Dates: start: 202405

REACTIONS (1)
  - Haemarthrosis [Recovered/Resolved]

NARRATIVE: CASE EVENT DATE: 20240727
